FAERS Safety Report 24348501 (Version 4)
Quarter: 2024Q4

REPORT INFORMATION
  Report Type: Spontaneous
  Country: DE (occurrence: DE)
  Receive Date: 20240923
  Receipt Date: 20241227
  Transmission Date: 20250115
  Serious: Yes (Hospitalization)
  Sender: ROCHE
  Company Number: DE-ROCHE-10000082987

PATIENT
  Sex: Male

DRUGS (1)
  1. VABYSMO [Suspect]
     Active Substance: FARICIMAB-SVOA
     Indication: Macular oedema
     Dosage: ON 05-SEP-2024, SHE RECEIVED MOST RECENT DOSE OF FARICIMAB. VABYSMO 120 MG/ML
     Route: 065

REACTIONS (5)
  - Visual impairment [Not Recovered/Not Resolved]
  - Eye pain [Not Recovered/Not Resolved]
  - Vision blurred [Recovering/Resolving]
  - Foreign body sensation in eyes [Unknown]
  - Visual acuity reduced [Unknown]
